FAERS Safety Report 10186345 (Version 1)
Quarter: 2014Q2

REPORT INFORMATION
  Report Type: Spontaneous
  Country: US (occurrence: US)
  Receive Date: 20140521
  Receipt Date: 20140521
  Transmission Date: 20141212
  Serious: No
  Sender: FDA-Public Use
  Company Number: US-ASTRAZENECA-2014SE09609

PATIENT
  Age: 7 Year
  Sex: Male
  Weight: 17.2 kg

DRUGS (1)
  1. PULMICORT RESPULES [Suspect]
     Indication: ASTHMA
     Route: 055
     Dates: start: 2010

REACTIONS (9)
  - Infection [Unknown]
  - Respiratory tract infection [Unknown]
  - Viral infection [Unknown]
  - Ear infection [Unknown]
  - Immune system disorder [Not Recovered/Not Resolved]
  - Bowel movement irregularity [Not Recovered/Not Resolved]
  - Cough [Not Recovered/Not Resolved]
  - Candida infection [Unknown]
  - Intentional product misuse [Not Recovered/Not Resolved]
